FAERS Safety Report 9311184 (Version 2)
Quarter: 2013Q2

REPORT INFORMATION
  Report Type: Report from Study
  Country: CA (occurrence: CA)
  Receive Date: 20130528
  Receipt Date: 20130627
  Transmission Date: 20140414
  Serious: Yes (Other)
  Sender: FDA-Public Use
  Company Number: CA-JNJFOC-20130516717

PATIENT
  Sex: Female
  Weight: 52.7 kg

DRUGS (6)
  1. REMICADE [Suspect]
     Indication: CROHN^S DISEASE
     Route: 042
     Dates: start: 20130521
  2. REMICADE [Suspect]
     Indication: CROHN^S DISEASE
     Route: 042
     Dates: start: 2006
  3. IMURAN [Concomitant]
     Route: 065
  4. VITAMIN D [Concomitant]
     Route: 065
  5. VITAMIN C [Concomitant]
     Route: 065
  6. CALCIUM [Concomitant]
     Route: 065

REACTIONS (1)
  - Female genital tract fistula [Not Recovered/Not Resolved]
